FAERS Safety Report 5129562-6 (Version None)
Quarter: 2006Q4

REPORT INFORMATION
  Report Type: 
  Country: None (occurrence: None)
  Receive Date: 20061018
  Receipt Date: 20061006
  Transmission Date: 20070319
  Serious: Yes (Other)
  Sender: FDA-Public Use
  Company Number: IE-JNJFOC-20061001426

PATIENT
  Age: 75 Year
  Sex: Female

DRUGS (4)
  1. LEVOFLOXACIN [Suspect]
     Indication: STAPHYLOCOCCAL SEPSIS
     Route: 042
     Dates: start: 20060329, end: 20060404
  2. FLUCONAZOLE [Concomitant]
     Route: 065
  3. FLAGYL [Concomitant]
     Route: 065
  4. FLUIDS [Concomitant]
     Route: 042

REACTIONS (2)
  - DYSKINESIA [None]
  - NYSTAGMUS [None]
